FAERS Safety Report 10544177 (Version 1)
Quarter: 2014Q4

REPORT INFORMATION
  Report Type: Spontaneous
  Country: CL (occurrence: None)
  Receive Date: 20141023
  Receipt Date: 20141023
  Transmission Date: 20150529
  Serious: Yes (Hospitalization)
  Sender: FDA-Public Use
  Company Number: FK201404338

PATIENT
  Age: 41 Year
  Sex: Female

DRUGS (9)
  1. CHLORPHENAMINE (CHLORPHENAMINE) [Concomitant]
  2. FENTANYL (FENTANYL) (FENTANYL) [Suspect]
     Active Substance: FENTANYL
     Indication: EPIDURAL ANAESTHESIA
     Dosage: 10 MG, 1 IN 1 TOTAL
     Dates: start: 20141006, end: 20141006
  3. TRAMADOLE (TRAMADOL HYDROCHLORIDE) [Concomitant]
  4. BETAMETHASONE (BETAMETHASONE) [Concomitant]
  5. EPHEDRINE (EPHEDRINE) [Concomitant]
  6. CEFAZOLINA (CEFAZOLIN SODIUM) [Concomitant]
  7. KETOROLAC (KETOROLAC) [Concomitant]
     Active Substance: KETOROLAC TROMETHAMINE
  8. LIDOCAINE HYDROCHLORIDE AND DEXTROSE [Suspect]
     Active Substance: LIDOCAINE HYDROCHLORIDE\LIDOCAINE HYDROCHLORIDE ANHYDROUS
     Indication: EPIDURAL ANAESTHESIA
     Dosage: 1 IN 1 (INTRASPINAL)
     Route: 024
     Dates: start: 20141006, end: 20141006
  9. DROPERIDOL. [Suspect]
     Active Substance: DROPERIDOL
     Indication: EPIDURAL ANAESTHESIA
     Dosage: 1 IN 1 TOTAL
     Dates: start: 20141006, end: 20141006

REACTIONS (5)
  - Communication disorder [None]
  - Disorientation [None]
  - Seizure [None]
  - Headache [None]
  - Anal sphincter atony [None]

NARRATIVE: CASE EVENT DATE: 20141007
